FAERS Safety Report 13192217 (Version 1)
Quarter: 2017Q1

REPORT INFORMATION
  Report Type: Spontaneous
  Country: US (occurrence: US)
  Receive Date: 20170207
  Receipt Date: 20170207
  Transmission Date: 20170428
  Serious: No
  Sender: FDA-Public Use
  Company Number: None

PATIENT

DRUGS (2)
  1. CHLORHEXIDINE GLUCONATE 0.12% [Suspect]
     Active Substance: CHLORHEXIDINE GLUCONATE
     Dosage: TYPE - UNIT DOSE CUP?SIZE - 15 ML CUPS
  2. LIDOCAINE HYDROCHLORIDE HCI 2% 15 ML CUPS [Suspect]
     Active Substance: LIDOCAINE HYDROCHLORIDE
     Dosage: TYPE - UNIT DOSE CUP?SIZE - 15 ML

REACTIONS (2)
  - Drug dispensing error [None]
  - Product packaging confusion [None]
